FAERS Safety Report 11421357 (Version 1)
Quarter: 2015Q3

REPORT INFORMATION
  Report Type: Spontaneous
  Country: BR (occurrence: BR)
  Receive Date: 20150826
  Receipt Date: 20150826
  Transmission Date: 20151125
  Serious: Yes (Other)
  Sender: FDA-Public Use
  Company Number: PHHY2015BR099983

PATIENT
  Age: 76 Year
  Sex: Female

DRUGS (3)
  1. IMIPRAMINE [Suspect]
     Active Substance: IMIPRAMINE
     Dosage: 25 MG, QD
     Route: 065
     Dates: start: 1979
  2. IMIPRAMINE [Suspect]
     Active Substance: IMIPRAMINE
     Dosage: 50 MG, QD
     Route: 065
     Dates: start: 198212
  3. IMIPRAMINE [Suspect]
     Active Substance: IMIPRAMINE
     Indication: DEPRESSION
     Dosage: 75 MG, QD
     Route: 065
     Dates: start: 1974, end: 1979

REACTIONS (13)
  - Hyperhidrosis [Unknown]
  - Cardiomyopathy [Recovered/Resolved]
  - Oedema peripheral [Recovered/Resolved]
  - Fatigue [Recovered/Resolved]
  - Hepatomegaly [Recovered/Resolved]
  - Dyspnoea at rest [Recovered/Resolved]
  - Sinus tachycardia [Recovered/Resolved]
  - Pulmonary congestion [Recovered/Resolved]
  - Dyspnoea paroxysmal nocturnal [Recovered/Resolved]
  - Cough [Unknown]
  - Decreased appetite [Unknown]
  - Dyspnoea [Recovered/Resolved]
  - Malaise [Unknown]

NARRATIVE: CASE EVENT DATE: 1982
